FAERS Safety Report 11345698 (Version 1)
Quarter: 2015Q3

REPORT INFORMATION
  Report Type: Spontaneous
  Country: US (occurrence: US)
  Receive Date: 20150806
  Receipt Date: 20150806
  Transmission Date: 20151125
  Serious: No
  Sender: FDA-Public Use
  Company Number: US-BAYER-2015-394833

PATIENT
  Age: 4 Year
  Sex: Female
  Weight: 18.14 kg

DRUGS (1)
  1. CHILDREN CLARITIN ALLERGY [Suspect]
     Active Substance: LORATADINE
     Indication: SEASONAL ALLERGY
     Dosage: 1 DOSE, QD
     Route: 048
     Dates: start: 20150725, end: 20150728

REACTIONS (2)
  - Drug ineffective [Unknown]
  - Abdominal pain [Recovered/Resolved]

NARRATIVE: CASE EVENT DATE: 20150725
